FAERS Safety Report 8924930 (Version 2)
Quarter: 2012Q4

REPORT INFORMATION
  Report Type: 
  Country: FR (occurrence: FR)
  Receive Date: 20121126
  Receipt Date: 20121211
  Transmission Date: 20130627
  Serious: Yes (Other)
  Sender: FDA-Public Use
  Company Number: FR-ASTRAZENECA-2012SE87114

PATIENT
  Age: 469 Month
  Sex: Female
  Weight: 54 kg

DRUGS (3)
  1. XEROQUEL [Suspect]
     Indication: BIPOLAR I DISORDER
     Route: 048
     Dates: start: 20121009, end: 20121020
  2. LEXOMIL [Concomitant]
     Indication: ANXIETY
     Route: 048
     Dates: start: 2011
  3. DEPAKOTE [Concomitant]

REACTIONS (4)
  - Nausea [Recovering/Resolving]
  - Weight decreased [Recovering/Resolving]
  - Food aversion [Recovered/Resolved]
  - Vomiting [Recovered/Resolved]
